FAERS Safety Report 8540166 (Version 7)
Quarter: 2014Q4

REPORT INFORMATION
  Report Type: Spontaneous
  Country: BR (occurrence: BR)
  Receive Date: 20120502
  Receipt Date: 20141023
  Transmission Date: 20150529
  Serious: Yes (Other)
  Sender: FDA-Public Use
  Company Number: BR-PFIZER INC-2012095726

PATIENT
  Age: 65 Year
  Sex: Female
  Weight: 54 kg

DRUGS (7)
  1. PREDNISONE. [Concomitant]
     Active Substance: PREDNISONE
  2. PARACETAMOL [Concomitant]
     Active Substance: ACETAMINOPHEN
  3. MORPHINE [Concomitant]
     Active Substance: MORPHINE
     Dosage: UNK
  4. CALCIUM [Concomitant]
     Active Substance: CALCIUM
     Dosage: UNK
     Route: 048
  5. SUTENT [Suspect]
     Active Substance: SUNITINIB MALATE
     Indication: RENAL CELL CARCINOMA
     Dosage: 50 MG, CYCLIC (4 BY 2) (2 PER 1) (1 PER 1), TAKING 17 DAYS AND STOPPIN , ONCE DAILY
     Route: 048
     Dates: start: 201204
  6. FLUDROCORTISONE [Concomitant]
     Active Substance: FLUDROCORTISONE
     Indication: RENAL DISORDER
     Dosage: 5 MG, DAILY
  7. PURAN [Concomitant]
     Active Substance: LEVOTHYROXINE SODIUM
     Dosage: 75 MG, 1X/DAY (IN THE MORNING, FASTING)

REACTIONS (13)
  - Abdominal pain upper [Unknown]
  - Weight decreased [Not Recovered/Not Resolved]
  - Fatigue [Unknown]
  - Asthenia [Unknown]
  - Blood pressure increased [Unknown]
  - Dysstasia [Not Recovered/Not Resolved]
  - Back pain [Not Recovered/Not Resolved]
  - Decreased appetite [Unknown]
  - Oral pain [Unknown]
  - Diarrhoea [Unknown]
  - Diabetes mellitus [Unknown]
  - Oral mucosal blistering [Unknown]
  - Nausea [Unknown]

NARRATIVE: CASE EVENT DATE: 201204
